FAERS Safety Report 13540370 (Version 9)
Quarter: 2018Q2

REPORT INFORMATION
  Report Type: Report from Study
  Country: BR (occurrence: BR)
  Receive Date: 20170512
  Receipt Date: 20180511
  Transmission Date: 20180711
  Serious: Yes (Hospitalization, Other)
  Sender: FDA-Public Use
  Company Number: BR-SA-2017SA083121

PATIENT
  Age: 55 Year
  Sex: Female
  Weight: 57 kg

DRUGS (2)
  1. ACICLOVIR [Concomitant]
     Active Substance: ACYCLOVIR
  2. LEMTRADA [Suspect]
     Active Substance: ALEMTUZUMAB
     Indication: MULTIPLE SCLEROSIS
     Dosage: FREQUENCY- 5DAY(FIRST CYCLE)
     Route: 041
     Dates: start: 20170327, end: 20170331

REACTIONS (40)
  - Throat tightness [Recovered/Resolved]
  - Listeriosis [Unknown]
  - Infection [Recovered/Resolved]
  - Malaise [Not Recovered/Not Resolved]
  - Decreased appetite [Recovered/Resolved]
  - Dysphagia [Recovered/Resolved]
  - Pyrexia [Recovered/Resolved]
  - Abdominal mass [Recovering/Resolving]
  - Urticaria [Recovered/Resolved]
  - Spleen disorder [Unknown]
  - Hypersensitivity [Unknown]
  - Skin lesion [Recovered/Resolved]
  - Dry mouth [Recovered/Resolved]
  - Dry skin [Recovered/Resolved]
  - Hepatic necrosis [Recovering/Resolving]
  - Abdominal symptom [Recovered/Resolved]
  - Lymphadenopathy [Recovered/Resolved]
  - Erythema [Recovered/Resolved]
  - Fatigue [Recovered/Resolved]
  - Pyrexia [Recovered/Resolved]
  - Headache [Recovered/Resolved]
  - Cholelithiasis [Recovered/Resolved]
  - Gait disturbance [Unknown]
  - Fatigue [Recovered/Resolved]
  - Hepatic necrosis [Unknown]
  - Abdominal pain [Recovered/Resolved]
  - Malaise [Recovered/Resolved]
  - Musculoskeletal disorder [Recovered/Resolved]
  - Pneumonia [Recovered/Resolved]
  - Infarction [Recovering/Resolving]
  - Abdominal discomfort [Unknown]
  - Cholelithiasis [Recovering/Resolving]
  - Granuloma [Recovering/Resolving]
  - Muscle spasms [Recovered/Resolved]
  - Lymph node tuberculosis [Recovering/Resolving]
  - Gait disturbance [Recovered/Resolved]
  - Tuberculosis [Recovered/Resolved]
  - Hypoaesthesia [Recovered/Resolved]
  - Anal incontinence [Recovered/Resolved]
  - Nonspecific reaction [Unknown]

NARRATIVE: CASE EVENT DATE: 20170328
